FAERS Safety Report 24730659 (Version 1)
Quarter: 2024Q4

REPORT INFORMATION
  Report Type: Other
  Country: IT (occurrence: IT)
  Receive Date: 20241213
  Receipt Date: 20241213
  Transmission Date: 20250115
  Serious: Yes (Hospitalization, Other)
  Sender: BIONPHARMA INC.
  Company Number: IT-Bion-014520

PATIENT
  Age: 45 Year
  Sex: Female

DRUGS (5)
  1. VALPROIC ACID [Suspect]
     Active Substance: VALPROIC ACID
     Indication: Huntington^s disease
  2. OLANZAPINE [Concomitant]
     Active Substance: OLANZAPINE
     Indication: Huntington^s disease
  3. ZOLPIDEM [Concomitant]
     Active Substance: ZOLPIDEM TARTRATE
     Indication: Huntington^s disease
     Dosage: 10 MG/DAY
  4. QUETIAPINE [Concomitant]
     Active Substance: QUETIAPINE
     Indication: Huntington^s disease
     Dosage: 50 MG/DAY
  5. HALOPERIDOL [Concomitant]
     Active Substance: HALOPERIDOL
     Indication: Huntington^s disease

REACTIONS (1)
  - Neuroleptic malignant syndrome [Recovering/Resolving]
